FAERS Safety Report 5656629-6 (Version None)
Quarter: 2008Q1

REPORT INFORMATION
  Report Type: 
  Country: None (occurrence: None)
  Receive Date: 20080219
  Receipt Date: 20071211
  Transmission Date: 20080703
  Serious: No
  Sender: FDA-Public Use
  Company Number: WAES 0712USA02795

PATIENT
  Age: 65 Year
  Sex: Male

DRUGS (7)
  1. JANUVIA [Suspect]
     Indication: TYPE 2 DIABETES MELLITUS
     Dosage: 100 MG/DAILY/PO ; 50 MG/PO
     Route: 048
     Dates: start: 20071001, end: 20071001
  2. JANUVIA [Suspect]
     Indication: TYPE 2 DIABETES MELLITUS
     Dosage: 100 MG/DAILY/PO ; 50 MG/PO
     Route: 048
     Dates: start: 20071001
  3. AVANDIA [Concomitant]
  4. CELEBREX [Concomitant]
  5. INDERAL [Concomitant]
  6. LIPITOR [Concomitant]
  7. ZETIA [Concomitant]

REACTIONS (1)
  - NASAL CONGESTION [None]
